FAERS Safety Report 10183919 (Version 2)
Quarter: 2014Q2

REPORT INFORMATION
  Report Type: Spontaneous
  Country: None (occurrence: US)
  Receive Date: 20140520
  Receipt Date: 20140523
  Transmission Date: 20141212
  Serious: Yes (Other)
  Sender: FDA-Public Use
  Company Number: US-TEVA-482800USA

PATIENT
  Age: 28 Year
  Sex: Female

DRUGS (1)
  1. PARAGARD 380A [Suspect]
     Indication: CONTRACEPTION
     Route: 015
     Dates: start: 20140403, end: 20140428

REACTIONS (6)
  - Embedded device [Recovered/Resolved]
  - Pain [Unknown]
  - Adnexa uteri pain [Unknown]
  - Complication of device insertion [Recovered/Resolved]
  - Discomfort [Unknown]
  - Nervousness [Unknown]
